FAERS Safety Report 11054688 (Version 1)
Quarter: 2015Q2

REPORT INFORMATION
  Report Type: Report from Study
  Country: CO (occurrence: CO)
  Receive Date: 20150422
  Receipt Date: 20150422
  Transmission Date: 20150821
  Serious: Yes (Disabling)
  Sender: FDA-Public Use
  Company Number: CO-SA-2015SA051581

PATIENT
  Age: 28 Year
  Sex: Male
  Weight: 48 kg

DRUGS (1)
  1. FABRAZYME [Suspect]
     Active Substance: AGALSIDASE BETA
     Indication: FABRY^S DISEASE
     Route: 042
     Dates: start: 201311

REACTIONS (2)
  - Hemiplegia [Recovering/Resolving]
  - Dysarthria [Recovering/Resolving]

NARRATIVE: CASE EVENT DATE: 20150409
